FAERS Safety Report 8087985 (Version 3)
Quarter: 2015Q2

REPORT INFORMATION
  Report Type: Spontaneous
  Country: US (occurrence: US)
  Receive Date: 20110812
  Receipt Date: 20150401
  Transmission Date: 20150821
  Serious: Yes (Other)
  Sender: FDA-Public Use
  Company Number: US-PFIZER INC-2011181264

PATIENT
  Sex: Female

DRUGS (1)
  1. SUTENT [Suspect]
     Active Substance: SUNITINIB MALATE
     Indication: CARCINOID TUMOUR
     Dosage: UNK

REACTIONS (8)
  - Small intestinal obstruction [Unknown]
  - Fatigue [Unknown]
  - Hepatic lesion [Unknown]
  - Disease progression [Unknown]
  - Carcinoid syndrome [Unknown]
  - Pain [Unknown]
  - Product use issue [Unknown]
  - Carcinoid tumour [Unknown]
